FAERS Safety Report 13407546 (Version 2)
Quarter: 2017Q2

REPORT INFORMATION
  Report Type: Report from Study
  Country: FR (occurrence: FR)
  Receive Date: 20170405
  Receipt Date: 20170504
  Transmission Date: 20170830
  Serious: Yes (Death, Hospitalization, Other)
  Sender: FDA-Public Use
  Company Number: FR-BAXTER-2016BAX053276

PATIENT
  Age: 67 Year
  Sex: Male

DRUGS (68)
  1. ENDOXAN 50 MG, COMPRIM? ENROB? [Suspect]
     Active Substance: CYCLOPHOSPHAMIDE
     Indication: CHRONIC LYMPHOCYTIC LEUKAEMIA
     Dosage: C1D1 PLANNED INITIAL INFUSION RATE:250MG/M2, ACTUAL MAXIMUM INFUSION RATE: 250MG/M2
     Route: 048
     Dates: start: 20131121, end: 20131121
  2. ENDOXAN 50 MG, COMPRIM? ENROB? [Suspect]
     Active Substance: CYCLOPHOSPHAMIDE
     Dosage: C2D1 PLANNED INITIAL INFUSION RATE:250MG/M2, ACTUAL MAXIMUM INFUSION RATE: 250MG/M2
     Route: 048
     Dates: start: 20131219, end: 20131219
  3. ENDOXAN 50 MG, COMPRIM? ENROB? [Suspect]
     Active Substance: CYCLOPHOSPHAMIDE
     Dosage: C3D1 PLANNED INITIAL INFUSION RATE:250MG/M2, ACTUAL MAXIMUM INFUSION RATE: 250MG/M2
     Route: 048
     Dates: start: 20140117, end: 20140117
  4. FLUDARABINE [Suspect]
     Active Substance: FLUDARABINE PHOSPHATE
     Dosage: C1D2 PLANNED INITIAL INFUSION RATE:40MG/M2, ACTUAL MAXIMUM INFUSION RATE 40MG/M2.
     Route: 048
     Dates: start: 20131122, end: 20131122
  5. FLUDARABINE [Suspect]
     Active Substance: FLUDARABINE PHOSPHATE
     Dosage: C3D1 PLANNED INITIAL INFUSION RATE:40MG/M2, ACTUAL MAXIMUM INFUSION RATE 40MG/M2.
     Route: 048
     Dates: start: 20140117, end: 20140117
  6. FLUDARABINE [Suspect]
     Active Substance: FLUDARABINE PHOSPHATE
     Dosage: C6D3 PLANNED INITIAL INFUSION RATE:30MG/M2, ACTUAL MAXIMUM INFUSION RATE 30MG/M2.
     Route: 048
     Dates: start: 20140501, end: 20140501
  7. ENDOXAN 50 MG, COMPRIM? ENROB? [Suspect]
     Active Substance: CYCLOPHOSPHAMIDE
     Dosage: C2D2 PLANNED INITIAL INFUSION RATE:250MG/M2, ACTUAL MAXIMUM INFUSION RATE: 250MG/M2
     Route: 048
     Dates: start: 20131220, end: 20131220
  8. ENDOXAN 50 MG, COMPRIM? ENROB? [Suspect]
     Active Substance: CYCLOPHOSPHAMIDE
     Dosage: C3D2 PLANNED INITIAL INFUSION RATE:250MG/M2, ACTUAL MAXIMUM INFUSION RATE: 250MG/M2
     Route: 048
     Dates: start: 20140118, end: 20140118
  9. ENDOXAN 50 MG, COMPRIM? ENROB? [Suspect]
     Active Substance: CYCLOPHOSPHAMIDE
     Dosage: C4D3 PLANNED INITIAL INFUSION RATE:250MG/M2, ACTUAL MAXIMUM INFUSION RATE: 250MG/M2
     Route: 048
     Dates: start: 20140215, end: 20140215
  10. ENDOXAN 50 MG, COMPRIM? ENROB? [Suspect]
     Active Substance: CYCLOPHOSPHAMIDE
     Dosage: C5D3 PLANNED INITIAL INFUSION RATE:187.5MG/M2, ACTUAL MAXIMUM INFUSION RATE: 187.5 MG/M2
     Route: 048
     Dates: start: 20140327, end: 20140327
  11. FLUDARABINE [Suspect]
     Active Substance: FLUDARABINE PHOSPHATE
     Dosage: C3D2 PLANNED INITIAL INFUSION RATE:40MG/M2, ACTUAL MAXIMUM INFUSION RATE 40MG/M2.
     Route: 048
     Dates: start: 20140118, end: 20140118
  12. FLUDARABINE [Suspect]
     Active Substance: FLUDARABINE PHOSPHATE
     Dosage: C4D3 PLANNED INITIAL INFUSION RATE:40MG/M2, ACTUAL MAXIMUM INFUSION RATE 40MG/M2.
     Route: 048
     Dates: start: 20140215, end: 20140215
  13. FLUDARABINE [Suspect]
     Active Substance: FLUDARABINE PHOSPHATE
     Dosage: C5D1 PLANNED INITIAL INFUSION RATE:30MG/M2, ACTUAL MAXIMUM INFUSION RATE 30MG/M2.
     Route: 048
     Dates: start: 20140325, end: 20140325
  14. FLUDARABINE [Suspect]
     Active Substance: FLUDARABINE PHOSPHATE
     Dosage: C5D3 PLANNED INITIAL INFUSION RATE:30MG/M2, ACTUAL MAXIMUM INFUSION RATE 30MG/M2.
     Route: 048
     Dates: start: 20140327, end: 20140327
  15. OBINUTUZUMAB [Suspect]
     Active Substance: OBINUTUZUMAB
     Dosage: C1D15 PALNNED INITIAL INFUSION RATE: 400, ACTUAL MAXIMUM INFUSION RATE 400
     Route: 042
     Dates: start: 20131205, end: 20131205
  16. OBINUTUZUMAB [Suspect]
     Active Substance: OBINUTUZUMAB
     Dosage: C6D1 PALNNED INITIAL INFUSION RATE: 400, ACTUAL MAXIMUM INFUSION RATE 400
     Route: 042
     Dates: start: 20140429, end: 20140429
  17. SALBUTAMOL [Concomitant]
     Active Substance: ALBUTEROL
     Indication: PRODUCT USED FOR UNKNOWN INDICATION
     Dosage: ROUTE AS PUFF
     Route: 065
     Dates: start: 20160310, end: 20160325
  18. LEDERFOLINE [Concomitant]
     Active Substance: LEUCOVORIN CALCIUM
     Indication: PROPHYLAXIS
     Route: 048
     Dates: start: 20131121
  19. ACTISKENAN [Concomitant]
     Active Substance: MORPHINE SULFATE
     Indication: PRODUCT USED FOR UNKNOWN INDICATION
     Route: 048
     Dates: start: 20140206, end: 20140221
  20. TRAMADOL. [Concomitant]
     Active Substance: TRAMADOL
     Indication: PRODUCT USED FOR UNKNOWN INDICATION
     Dosage: PELLET
     Route: 048
     Dates: start: 20140325, end: 20140722
  21. AMIKLIN [Concomitant]
     Active Substance: AMIKACIN SULFATE
     Indication: PRODUCT USED FOR UNKNOWN INDICATION
     Route: 042
     Dates: start: 20160310, end: 20160325
  22. AMBISOME [Concomitant]
     Active Substance: AMPHOTERICIN B
     Indication: PRODUCT USED FOR UNKNOWN INDICATION
     Route: 042
     Dates: start: 20160914, end: 20160929
  23. ENDOXAN 50 MG, COMPRIM? ENROB? [Suspect]
     Active Substance: CYCLOPHOSPHAMIDE
     Dosage: C2D3 PLANNED INITIAL INFUSION RATE:250MG/M2, ACTUAL MAXIMUM INFUSION RATE: 250MG/M2
     Route: 048
     Dates: start: 20131221, end: 20131221
  24. ENDOXAN 50 MG, COMPRIM? ENROB? [Suspect]
     Active Substance: CYCLOPHOSPHAMIDE
     Dosage: C4D1 PLANNED INITIAL INFUSION RATE:250MG/M2, ACTUAL MAXIMUM INFUSION RATE: 250MG/M2
     Route: 048
     Dates: start: 20140213, end: 20140213
  25. ENDOXAN 50 MG, COMPRIM? ENROB? [Suspect]
     Active Substance: CYCLOPHOSPHAMIDE
     Dosage: C5D2 PLANNED INITIAL INFUSION RATE:187.5MG/M2, ACTUAL MAXIMUM INFUSION RATE: 187.5 MG/M2
     Route: 048
     Dates: start: 20140326, end: 20140326
  26. FLUDARABINE [Suspect]
     Active Substance: FLUDARABINE PHOSPHATE
     Indication: CHRONIC LYMPHOCYTIC LEUKAEMIA
     Dosage: C1D1 PLANNED INITIAL INFUSION RATE:40MG/M2, ACTUAL MAXIMUM INFUSION RATE 40MG/M2.
     Route: 048
     Dates: start: 20131121, end: 20131121
  27. FLUDARABINE [Suspect]
     Active Substance: FLUDARABINE PHOSPHATE
     Dosage: C2D3 PLANNED INITIAL INFUSION RATE:40MG/M2, ACTUAL MAXIMUM INFUSION RATE 40MG/M2.
     Route: 048
     Dates: start: 20131221, end: 20131221
  28. FLUDARABINE [Suspect]
     Active Substance: FLUDARABINE PHOSPHATE
     Dosage: C6D1 PLANNED INITIAL INFUSION RATE:30MG/M2, ACTUAL MAXIMUM INFUSION RATE 30MG/M2.
     Route: 048
     Dates: start: 20140429, end: 20140429
  29. PARALYOC [Concomitant]
     Active Substance: ACETAMINOPHEN
     Indication: PRODUCT USED FOR UNKNOWN INDICATION
     Dosage: SINGLE DOSE
     Route: 048
     Dates: start: 20131121, end: 20131121
  30. AUGMENTIN [Concomitant]
     Active Substance: AMOXICILLIN\CLAVULANATE POTASSIUM
     Indication: PRODUCT USED FOR UNKNOWN INDICATION
     Route: 048
     Dates: start: 20131119, end: 20131126
  31. TAZOCILLINE [Concomitant]
     Active Substance: PIPERACILLIN SODIUM\TAZOBACTAM SODIUM
     Indication: PRODUCT USED FOR UNKNOWN INDICATION
     Route: 042
     Dates: start: 20160310, end: 20160325
  32. PARACETAMOL [Concomitant]
     Active Substance: ACETAMINOPHEN
     Indication: PRODUCT USED FOR UNKNOWN INDICATION
     Route: 048
     Dates: start: 20140325, end: 20140722
  33. BRICANYL [Concomitant]
     Active Substance: TERBUTALINE SULFATE
     Indication: PRODUCT USED FOR UNKNOWN INDICATION
     Dosage: INTRANASAL
     Route: 065
     Dates: start: 20160310, end: 20160316
  34. ATROVENT [Concomitant]
     Active Substance: IPRATROPIUM BROMIDE
     Indication: PRODUCT USED FOR UNKNOWN INDICATION
     Dosage: 2 PUFF, INTRANASAL
     Route: 065
     Dates: start: 20160310, end: 20160316
  35. FLUDARABINE [Suspect]
     Active Substance: FLUDARABINE PHOSPHATE
     Dosage: C3D3 PLANNED INITIAL INFUSION RATE:40MG/M2, ACTUAL MAXIMUM INFUSION RATE 40MG/M2.
     Route: 048
     Dates: start: 20140119, end: 20140119
  36. OBINUTUZUMAB [Suspect]
     Active Substance: OBINUTUZUMAB
     Dosage: C2D1 PALNNED INITIAL INFUSION RATE: 400, ACTUAL MAXIMUM INFUSION RATE 400
     Route: 042
     Dates: start: 20131219, end: 20131219
  37. OBINUTUZUMAB [Suspect]
     Active Substance: OBINUTUZUMAB
     Dosage: C4D1 PALNNED INITIAL INFUSION RATE: 400, ACTUAL MAXIMUM INFUSION RATE 400
     Route: 042
     Dates: start: 20140213, end: 20140213
  38. OBINUTUZUMAB [Suspect]
     Active Substance: OBINUTUZUMAB
     Dosage: C5D1 PALNNED INITIAL INFUSION RATE: 400, ACTUAL MAXIMUM INFUSION RATE 400
     Route: 042
     Dates: start: 20140325, end: 20140325
  39. ZYVOXID [Concomitant]
     Active Substance: LINEZOLID
     Indication: PRODUCT USED FOR UNKNOWN INDICATION
     Route: 042
     Dates: start: 20160907, end: 20161001
  40. ENDOXAN 50 MG, COMPRIM? ENROB? [Suspect]
     Active Substance: CYCLOPHOSPHAMIDE
     Dosage: C1D3 PLANNED INITIAL INFUSION RATE:250MG/M2, ACTUAL MAXIMUM INFUSION RATE: 250MG/M2
     Route: 048
     Dates: start: 20131123, end: 20131123
  41. ENDOXAN 50 MG, COMPRIM? ENROB? [Suspect]
     Active Substance: CYCLOPHOSPHAMIDE
     Dosage: C3D3 PLANNED INITIAL INFUSION RATE:250MG/M2, ACTUAL MAXIMUM INFUSION RATE:250MG/M2
     Route: 048
     Dates: start: 20140119, end: 20140119
  42. FLUDARABINE [Suspect]
     Active Substance: FLUDARABINE PHOSPHATE
     Dosage: C2D1 PLANNED INITIAL INFUSION RATE:40MG/M2, ACTUAL MAXIMUM INFUSION RATE 40MG/M2.
     Route: 048
     Dates: start: 20131219, end: 20131219
  43. OBINUTUZUMAB [Suspect]
     Active Substance: OBINUTUZUMAB
     Indication: CHRONIC LYMPHOCYTIC LEUKAEMIA
     Dosage: C1D1 PLANNED INITIAL INFUSION RATE: 25, ACTUAL MAXIMUM INFUSION RATE 12.5
     Route: 042
     Dates: start: 20131121, end: 20131121
  44. OBINUTUZUMAB [Suspect]
     Active Substance: OBINUTUZUMAB
     Dosage: C1D8 PALNNED INITIAL INFUSION RATE: 400, ACTUAL MAXIMUM INFUSION RATE 400
     Route: 042
     Dates: start: 20131128, end: 20131128
  45. TAMIFLU [Concomitant]
     Active Substance: OSELTAMIVIR PHOSPHATE
     Indication: PRODUCT USED FOR UNKNOWN INDICATION
     Route: 048
     Dates: start: 20160310, end: 20160316
  46. TIENAM [Concomitant]
     Active Substance: CILASTATIN SODIUM\IMIPENEM
     Indication: PRODUCT USED FOR UNKNOWN INDICATION
     Route: 042
     Dates: start: 20160907, end: 20161125
  47. AMBISOME [Concomitant]
     Active Substance: AMPHOTERICIN B
     Route: 042
     Dates: start: 20161002, end: 201701
  48. CRESEMBA [Concomitant]
     Active Substance: ISAVUCONAZONIUM SULFATE
     Indication: PRODUCT USED FOR UNKNOWN INDICATION
     Route: 065
  49. ENDOXAN 50 MG, COMPRIM? ENROB? [Suspect]
     Active Substance: CYCLOPHOSPHAMIDE
     Dosage: C5D1 PLANNED INITIAL INFUSION RATE:187.5MG/M2, ACTUAL MAXIMUM INFUSION RATE: 187.5 MG/M2
     Route: 048
     Dates: start: 20140325, end: 20140325
  50. ENDOXAN 50 MG, COMPRIM? ENROB? [Suspect]
     Active Substance: CYCLOPHOSPHAMIDE
     Dosage: C6D3 PLANNED INITIAL INFUSION RATE:187.5MG/M2, ACTUAL MAXIMUM INFUSION RATE: 187.5 MG/M2
     Route: 048
     Dates: start: 20140501, end: 20140501
  51. FLUDARABINE [Suspect]
     Active Substance: FLUDARABINE PHOSPHATE
     Dosage: C4D1 PLANNED INITIAL INFUSION RATE:40MG/M2, ACTUAL MAXIMUM INFUSION RATE 40MG/M2.
     Route: 048
     Dates: start: 20140213, end: 20140213
  52. FLUDARABINE [Suspect]
     Active Substance: FLUDARABINE PHOSPHATE
     Dosage: C6D2 PLANNED INITIAL INFUSION RATE:30MG/M2, ACTUAL MAXIMUM INFUSION RATE 30MG/M2.
     Route: 048
     Dates: start: 20140430, end: 20140430
  53. OBINUTUZUMAB [Suspect]
     Active Substance: OBINUTUZUMAB
     Dosage: C1D2 PALNNED INITIAL INFUSION RATE: 400, ACTUAL MAXIMUM INFUSION RATE 400
     Route: 042
     Dates: start: 20131122, end: 20131122
  54. ROCEPHINE [Concomitant]
     Active Substance: CEFTRIAXONE SODIUM
     Indication: PRODUCT USED FOR UNKNOWN INDICATION
     Route: 065
  55. ENDOXAN 50 MG, COMPRIM? ENROB? [Suspect]
     Active Substance: CYCLOPHOSPHAMIDE
     Dosage: C6D1 PLANNED INITIAL INFUSION RATE:187.5MG/M2, ACTUAL MAXIMUM INFUSION RATE: 187.5 MG/M2
     Route: 048
     Dates: start: 20140429, end: 20140429
  56. ENDOXAN 50 MG, COMPRIM? ENROB? [Suspect]
     Active Substance: CYCLOPHOSPHAMIDE
     Dosage: C6D2 PLANNED INITIAL INFUSION RATE:187.5MG/M2, ACTUAL MAXIMUM INFUSION RATE: 187.5 MG/M2
     Route: 048
     Dates: start: 20140430, end: 20140430
  57. FLUDARABINE [Suspect]
     Active Substance: FLUDARABINE PHOSPHATE
     Dosage: C5D2 PLANNED INITIAL INFUSION RATE:30MG/M2, ACTUAL MAXIMUM INFUSION RATE 30MG/M2.
     Route: 048
     Dates: start: 20140326, end: 20140326
  58. BACTRIM [Concomitant]
     Active Substance: SULFAMETHOXAZOLE\TRIMETHOPRIM
     Indication: PROPHYLAXIS
     Route: 048
     Dates: start: 20131121
  59. ZELITREX [Concomitant]
     Active Substance: VALACYCLOVIR HYDROCHLORIDE
     Indication: PROPHYLAXIS
     Route: 048
     Dates: start: 20131121
  60. SKENAN [Concomitant]
     Active Substance: MORPHINE SULFATE
     Indication: PRODUCT USED FOR UNKNOWN INDICATION
     Route: 048
     Dates: start: 20140206, end: 20140221
  61. OXYGEN. [Concomitant]
     Active Substance: OXYGEN
     Indication: PRODUCT USED FOR UNKNOWN INDICATION
     Dosage: INTRANASAL, DOSE 40% FLO2
     Route: 045
     Dates: start: 20160310, end: 20160325
  62. ENDOXAN 50 MG, COMPRIM? ENROB? [Suspect]
     Active Substance: CYCLOPHOSPHAMIDE
     Dosage: C1D2 PLANNED INITIAL INFUSION RATE:250MG/M2, ACTUAL MAXIMUM INFUSION RATE: 250MG/M2
     Route: 048
     Dates: start: 20131122, end: 20131122
  63. ENDOXAN 50 MG, COMPRIM? ENROB? [Suspect]
     Active Substance: CYCLOPHOSPHAMIDE
     Dosage: C4D2 PLANNED INITIAL INFUSION RATE:250MG/M2, ACTUAL MAXIMUM INFUSION RATE: 250MG/M2
     Route: 048
     Dates: start: 20140214, end: 20140214
  64. FLUDARABINE [Suspect]
     Active Substance: FLUDARABINE PHOSPHATE
     Dosage: C1D3 PLANNED INITIAL INFUSION RATE:40MG/M2, ACTUAL MAXIMUM INFUSION RATE 40MG/M2.
     Route: 048
     Dates: start: 20131123, end: 20131123
  65. FLUDARABINE [Suspect]
     Active Substance: FLUDARABINE PHOSPHATE
     Dosage: C2D2 PLANNED INITIAL INFUSION RATE:40MG/M2, ACTUAL MAXIMUM INFUSION RATE 40MG/M2.
     Route: 048
     Dates: start: 20131220, end: 20131220
  66. FLUDARABINE [Suspect]
     Active Substance: FLUDARABINE PHOSPHATE
     Dosage: C4D2 PLANNED INITIAL INFUSION RATE:40MG/M2, ACTUAL MAXIMUM INFUSION RATE 40MG/M2.
     Route: 048
     Dates: start: 20140214, end: 20140214
  67. OBINUTUZUMAB [Suspect]
     Active Substance: OBINUTUZUMAB
     Dosage: C3D1 PALNNED INITIAL INFUSION RATE: 400, ACTUAL MAXIMUM INFUSION RATE 400
     Route: 042
     Dates: start: 20140117, end: 20140117
  68. AXEPIM [Concomitant]
     Active Substance: CEFEPIME HYDROCHLORIDE
     Indication: PRODUCT USED FOR UNKNOWN INDICATION
     Route: 048
     Dates: start: 20160906, end: 20160907

REACTIONS (3)
  - Pancytopenia [Unknown]
  - Neutropenia [Unknown]
  - Acute myeloid leukaemia [Fatal]

NARRATIVE: CASE EVENT DATE: 201603
